FAERS Safety Report 8059346-0 (Version None)
Quarter: 2012Q1

REPORT INFORMATION
  Report Type: 
  Country: None (occurrence: None)
  Receive Date: 20120120
  Receipt Date: 20120120
  Transmission Date: 20120608
  Serious: Yes (Other)
  Sender: FDA-Public Use
  Company Number: None

PATIENT
  Age: 51 Year
  Sex: Male
  Weight: 86 kg

DRUGS (5)
  1. OXALIPLATIN [Concomitant]
  2. MORPHINE [Concomitant]
  3. BENICAR [Concomitant]
  4. DECADRON [Concomitant]
  5. XELODA [Suspect]
     Indication: COLORECTAL CANCER METASTATIC
     Dosage: UNKNOWN
     Route: 048

REACTIONS (4)
  - OEDEMA PERIPHERAL [None]
  - PAIN [None]
  - SKIN HYPERPIGMENTATION [None]
  - PALMAR-PLANTAR ERYTHRODYSAESTHESIA SYNDROME [None]
